FAERS Safety Report 8629326 (Version 3)
Quarter: 2013Q4

REPORT INFORMATION
  Report Type: Spontaneous
  Country: TR (occurrence: TR)
  Receive Date: 20120622
  Receipt Date: 20131015
  Transmission Date: 20140711
  Serious: Yes (Other)
  Sender: FDA-Public Use
  Company Number: TR-AMGEN-TURSP2012037147

PATIENT
  Age: 39 Year
  Sex: Female

DRUGS (1)
  1. ENBREL [Suspect]
     Indication: ANKYLOSING SPONDYLITIS
     Dosage: 25 MG, IRREGULAR USE
     Route: 058
     Dates: start: 20100427

REACTIONS (9)
  - Uterine haemorrhage [Not Recovered/Not Resolved]
  - Weight increased [Not Recovered/Not Resolved]
  - Cervicitis [Recovered/Resolved]
  - Pain [Not Recovered/Not Resolved]
  - Swelling [Not Recovered/Not Resolved]
  - Uterine mass [Not Recovered/Not Resolved]
  - Arthropathy [Not Recovered/Not Resolved]
  - Inappropriate schedule of drug administration [Not Recovered/Not Resolved]
  - Urinary tract infection [Recovered/Resolved]
